FAERS Safety Report 10224110 (Version 2)
Quarter: 2014Q2

REPORT INFORMATION
  Report Type: Spontaneous
  Country: US (occurrence: US)
  Receive Date: 20140609
  Receipt Date: 20140612
  Transmission Date: 20141212
  Serious: Yes (Other)
  Sender: FDA-Public Use
  Company Number: US-SA-2014SA073765

PATIENT
  Age: 21 Year
  Sex: Female

DRUGS (2)
  1. ALLEGRA [Suspect]
     Indication: PRODUCT USED FOR UNKNOWN INDICATION
     Route: 065
     Dates: start: 20140530
  2. CLARITIN [Concomitant]
     Route: 065
     Dates: start: 20140529

REACTIONS (5)
  - Delirium [Unknown]
  - Dizziness [Unknown]
  - Vision blurred [Unknown]
  - Hallucination [Unknown]
  - Drug ineffective [Unknown]
